FAERS Safety Report 5338819-5 (Version None)
Quarter: 2007Q2

REPORT INFORMATION
  Report Type: 
  Country: None (occurrence: None)
  Receive Date: 20070322
  Receipt Date: 20060814
  Transmission Date: 20071010
  Serious: Yes (Other)
  Sender: FDA-Public Use
  Company Number: 200613246BCC

PATIENT
  Age: 80 Year
  Sex: Female
  Weight: 68.0396 kg

DRUGS (6)
  1. ALEVE [Suspect]
     Indication: ARTHRITIS
     Dosage: 220 MG, BID, ORAL
     Route: 048
     Dates: start: 20060701
  2. BLOOD PRESSURE MEDICATION [Concomitant]
  3. PLAVIX [Concomitant]
  4. CALCIUM CHLORIDE [Concomitant]
  5. OSTEO BI-FLEX [Concomitant]
  6. ONE SOURCE /01768901/ [Concomitant]

REACTIONS (1)
  - HAEMATOCHEZIA [None]
